FAERS Safety Report 20955563 (Version 1)
Quarter: 2022Q2

REPORT INFORMATION
  Report Type: Spontaneous
  Country: US (occurrence: None)
  Receive Date: 20220613
  Receipt Date: 20220613
  Transmission Date: 20220720
  Serious: Yes (Other)
  Sender: FDA-Public Use
  Company Number: None

PATIENT
  Sex: Male

DRUGS (2)
  1. ADZENYS XR-ODT [Suspect]
     Active Substance: AMPHETAMINE
  2. ADZENYS ER [Suspect]
     Active Substance: AMPHETAMINE

REACTIONS (2)
  - Therapeutic product effect decreased [None]
  - Treatment failure [None]
